FAERS Safety Report 10701525 (Version 3)
Quarter: 2015Q1

REPORT INFORMATION
  Report Type: Spontaneous
  Country: US (occurrence: US)
  Receive Date: 20150109
  Receipt Date: 20150212
  Transmission Date: 20150721
  Serious: Yes (Other)
  Sender: FDA-Public Use
  Company Number: US-TEVA-533208USA

PATIENT
  Age: 21 Year
  Sex: Female
  Weight: 126.67 kg

DRUGS (3)
  1. PARAGARD T 380A [Suspect]
     Active Substance: COPPER
     Indication: CONTRACEPTION
     Route: 015
     Dates: start: 20140527, end: 20150107
  2. LEVOTHYROXINE [Concomitant]
     Active Substance: LEVOTHYROXINE
     Indication: HYPOTHYROIDISM
  3. OVEON [Concomitant]
     Dosage: 35
     Dates: start: 20150121

REACTIONS (4)
  - Nausea [Unknown]
  - Device dislocation [Recovered/Resolved]
  - Pregnancy on contraceptive [Not Recovered/Not Resolved]
  - Vomiting [Unknown]

NARRATIVE: CASE EVENT DATE: 20150105
